FAERS Safety Report 5683571-7 (Version None)
Quarter: 2008Q2

REPORT INFORMATION
  Report Type: 
  Country: None (occurrence: None)
  Receive Date: 20080321
  Receipt Date: 20070509
  Transmission Date: 20081010
  Serious: Yes (Hospitalization)
  Sender: FDA-Public Use
  Company Number: 496803

PATIENT
  Age: 76 Year
  Sex: Male
  Weight: 71.7 kg

DRUGS (1)
  1. BUMEX [Suspect]
     Indication: CARDIAC FAILURE CONGESTIVE
     Dosage: 0.25 MG/ML INTRAVENOUS
     Route: 042
     Dates: start: 20070426, end: 20070430

REACTIONS (6)
  - ASTHENIA [None]
  - CONFUSIONAL STATE [None]
  - HYPERHIDROSIS [None]
  - INCORRECT DRUG ADMINISTRATION RATE [None]
  - PALLOR [None]
  - VENTRICULAR TACHYCARDIA [None]
